FAERS Safety Report 5900991-3 (Version None)
Quarter: 2008Q3

REPORT INFORMATION
  Report Type: 
  Country: None (occurrence: None)
  Receive Date: 20080924
  Receipt Date: 20070919
  Transmission Date: 20090109
  Serious: Yes (Life-Threatening, Hospitalization)
  Sender: FDA-Public Use
  Company Number: 2007-00804FE

PATIENT
  Age: 63 Year
  Sex: Female

DRUGS (1)
  1. MINIRIN [Suspect]
     Indication: NOCTURIA
     Dosage: 120 MCG SL
     Route: 060
     Dates: start: 20070826, end: 20070829

REACTIONS (3)
  - COMA [None]
  - HYPONATRAEMIA [None]
  - WATER INTOXICATION [None]
